FAERS Safety Report 7788503-3 (Version None)
Quarter: 2011Q3

REPORT INFORMATION
  Report Type: 
  Country: None (occurrence: None)
  Receive Date: 20110930
  Receipt Date: 20110922
  Transmission Date: 20111222
  Serious: Yes (Death)
  Sender: FDA-Public Use
  Company Number: PHHO2010IT17471

PATIENT
  Sex: Female

DRUGS (1)
  1. EVEROLIMUS [Suspect]
     Indication: TRANSPLANT
     Dosage: UNK
     Route: 048

REACTIONS (2)
  - BREAST MASS [None]
  - CEREBRAL HAEMORRHAGE [None]
